FAERS Safety Report 5689914-2 (Version None)
Quarter: 2008Q1

REPORT INFORMATION
  Report Type: 
  Country: None (occurrence: None)
  Receive Date: 20080331
  Receipt Date: 20080331
  Transmission Date: 20080703
  Serious: Yes (Life-Threatening)
  Sender: FDA-Public Use
  Company Number: None

PATIENT
  Age: 70 Year
  Sex: Female
  Weight: 77 kg

DRUGS (2)
  1. PAROXETINE HCL [Suspect]
     Indication: DEPRESSION
     Dosage: 30 MG DAILY ORAL
     Route: 048
     Dates: start: 20080313, end: 20080326
  2. LINEZOLID [Suspect]
     Indication: PNEUMONIA
     Dosage: 600 MG Q12HOURS IV
     Route: 042
     Dates: start: 20080314, end: 20080326

REACTIONS (2)
  - CHEST PAIN [None]
  - NAUSEA [None]
